FAERS Safety Report 6955414-2 (Version None)
Quarter: 2010Q3

REPORT INFORMATION
  Report Type: 
  Country: None (occurrence: None)
  Receive Date: 20100830
  Receipt Date: 20100824
  Transmission Date: 20110219
  Serious: Yes (Hospitalization)
  Sender: FDA-Public Use
  Company Number: DE-NAPPMUNDI-DEU-2010-0006524

PATIENT
  Age: 71 Year
  Sex: Female

DRUGS (3)
  1. MST 10 MG MUNDIPHARMA [Suspect]
     Indication: PAIN
     Dosage: 10 MG, BID
     Route: 048
     Dates: start: 20100101
  2. MST 10 MG MUNDIPHARMA [Suspect]
     Dosage: 10 MG, QID
     Route: 048
     Dates: start: 20100301, end: 20100101
  3. MAO INHIBITORS [Concomitant]

REACTIONS (1)
  - DEPRESSED LEVEL OF CONSCIOUSNESS [None]
